FAERS Safety Report 7509702-1 (Version None)
Quarter: 2011Q2

REPORT INFORMATION
  Report Type: 
  Country: None (occurrence: None)
  Receive Date: 20110527
  Receipt Date: 20110516
  Transmission Date: 20111010
  Serious: Yes (Hospitalization)
  Sender: FDA-Public Use
  Company Number: JP-MERCK-1104USA03901

PATIENT
  Age: 80 Year
  Sex: Female
  Weight: 47 kg

DRUGS (7)
  1. CALFINA [Concomitant]
     Indication: OSTEOPOROSIS
     Route: 048
     Dates: start: 20110101
  2. JANUVIA [Suspect]
     Indication: TYPE 2 DIABETES MELLITUS
     Route: 048
     Dates: start: 20110323, end: 20110411
  3. GLYBURIDE [Concomitant]
     Route: 048
     Dates: end: 20110316
  4. CRESTOR [Concomitant]
     Indication: HYPERLIPIDAEMIA
     Route: 048
     Dates: start: 20110101
  5. TIZANIDINE HYDROCHLORIDE [Concomitant]
     Route: 048
     Dates: start: 20110101
  6. PRODONER [Concomitant]
     Route: 048
     Dates: start: 20110101
  7. FOSAMAX [Concomitant]
     Indication: OSTEOPOROSIS
     Route: 048
     Dates: start: 20110101

REACTIONS (2)
  - CHOLELITHIASIS [None]
  - LIVER DISORDER [None]
